FAERS Safety Report 19861139 (Version 1)
Quarter: 2021Q3

REPORT INFORMATION
  Report Type: Other
  Country: CA (occurrence: CA)
  Receive Date: 20210920
  Receipt Date: 20210920
  Transmission Date: 20211014
  Serious: Yes (Death, Life-Threatening, Hospitalization, Other)
  Sender: FDA-Public Use
  Company Number: CA-PFIZER INC-202101161480

PATIENT

DRUGS (7)
  1. FILGRASTIM [Suspect]
     Active Substance: FILGRASTIM
     Indication: PROPHYLAXIS
     Dosage: 5 UG/KG
     Route: 058
  2. CYCLOPHOSPHAMIDE. [Concomitant]
     Active Substance: CYCLOPHOSPHAMIDE
     Indication: CENTRAL NERVOUS SYSTEM LYMPHOMA
     Dosage: 660 MG/M2
     Route: 042
  3. MANNITOL. [Concomitant]
     Active Substance: MANNITOL
     Dosage: UNK
  4. FOLINIC ACID [Concomitant]
     Active Substance: LEUCOVORIN
     Indication: CENTRAL NERVOUS SYSTEM LYMPHOMA
     Dosage: UNK
  5. ETOPOSIDE PHOSPHATE [Concomitant]
     Active Substance: ETOPOSIDE PHOSPHATE
     Indication: CENTRAL NERVOUS SYSTEM LYMPHOMA
     Dosage: 400 MG/M2
     Route: 042
  6. METHOTREXATE. [Concomitant]
     Active Substance: METHOTREXATE
     Indication: CENTRAL NERVOUS SYSTEM LYMPHOMA
     Dosage: 5 G
     Route: 013
  7. CARBOPLATIN. [Concomitant]
     Active Substance: CARBOPLATIN
     Indication: CENTRAL NERVOUS SYSTEM LYMPHOMA
     Dosage: 400 MG/M2
     Route: 013

REACTIONS (13)
  - Neutropenia [Fatal]
  - Cerebrovascular accident [Fatal]
  - Seizure [Fatal]
  - Anaemia [Fatal]
  - Death [Fatal]
  - Sepsis [Fatal]
  - Lacunar stroke [Fatal]
  - Pneumonia [Fatal]
  - Thrombocytopenia [Fatal]
  - Central nervous system lymphoma [Fatal]
  - Pulmonary embolism [Fatal]
  - Status epilepticus [Fatal]
  - Transient ischaemic attack [Fatal]
